FAERS Safety Report 16714986 (Version 1)
Quarter: 2019Q3

REPORT INFORMATION
  Report Type: Spontaneous
  Country: US (occurrence: US)
  Receive Date: 20190819
  Receipt Date: 20190819
  Transmission Date: 20191005
  Serious: No
  Sender: FDA-Public Use
  Company Number: US-AMGEN-USASP2019129184

PATIENT
  Age: 83 Year
  Sex: Female

DRUGS (3)
  1. PROLIA [Suspect]
     Active Substance: DENOSUMAB
     Indication: OSTEOPOROSIS POSTMENOPAUSAL
     Dosage: 60 MILLIGRAM, Q6MO
     Route: 065
     Dates: start: 20190604
  2. CREON [Concomitant]
     Active Substance: PANCRELIPASE AMYLASE\PANCRELIPASE LIPASE\PANCRELIPASE PROTEASE
     Dosage: 24000 LIPASE UNIT CAPSULES
     Dates: start: 2012
  3. ARMOUR THYROID [Concomitant]
     Active Substance: THYROID, PORCINE
     Indication: HYPOTHYROIDISM
     Dosage: 120 MILLIGRAM, QD
     Dates: start: 1962

REACTIONS (7)
  - Urinary incontinence [Unknown]
  - Feeling abnormal [Unknown]
  - Gastric disorder [Unknown]
  - Renal pain [Unknown]
  - Ear discomfort [Unknown]
  - Constipation [Unknown]
  - Blood urine present [Unknown]

NARRATIVE: CASE EVENT DATE: 201907
